FAERS Safety Report 10404298 (Version 1)
Quarter: 2014Q1

REPORT INFORMATION
  Report Type: Spontaneous
  Country: US (occurrence: None)
  Receive Date: 20131226
  Receipt Date: 20131226
  Transmission Date: 20141002
  Serious: Yes (Death)
  Sender: FDA-Public Use
  Company Number: PHEH2012US004872

PATIENT
  Age: 70 Year
  Sex: Male

DRUGS (1)
  1. AFINITOR (RAD) UNKNOWN [Suspect]
     Indication: RENAL CANCER
     Route: 048

REACTIONS (1)
  - Oncologic complication [None]
